FAERS Safety Report 16703880 (Version 1)
Quarter: 2019Q3

REPORT INFORMATION
  Report Type: Report from Study
  Country: FR (occurrence: FR)
  Receive Date: 20190814
  Receipt Date: 20190814
  Transmission Date: 20191004
  Serious: Yes (Hospitalization)
  Sender: FDA-Public Use
  Company Number: FR-MYLANLABS-2019M1074929

PATIENT
  Age: 73 Year
  Sex: Female
  Weight: 40.9 kg

DRUGS (7)
  1. GEMCITABINE. [Suspect]
     Active Substance: GEMCITABINE
     Dosage: 900 MG/M2, 1 AND 8 DAY OF EACH 21 DAY CYCLE
     Route: 042
     Dates: start: 20180827
  2. VITAMIN B12 [Concomitant]
     Active Substance: CYANOCOBALAMIN
     Dosage: UNK UNK, UNK
     Route: 065
  3. GEMCITABINE. [Suspect]
     Active Substance: GEMCITABINE
     Indication: SOFT TISSUE SARCOMA
     Dosage: 900 MG/M2, QCY
     Route: 042
     Dates: start: 20180423
  4. DEBRIDAT                           /00465201/ [Concomitant]
     Active Substance: TRIMEBUTINE MALEATE
     Dosage: UNK UNK, UNK
     Route: 065
  5. DOCETAXEL. [Suspect]
     Active Substance: DOCETAXEL
     Indication: SOFT TISSUE SARCOMA
     Dosage: 75 MG/M2, QCY
     Route: 042
     Dates: start: 20180423
  6. DOCETAXEL. [Suspect]
     Active Substance: DOCETAXEL
     Dosage: 75 MG/M2, ON DAY 8 OF EACH 21 DAY CYCLE
     Route: 042
     Dates: start: 20180813
  7. LOVENOX [Concomitant]
     Active Substance: ENOXAPARIN SODIUM
     Dosage: UNK, UNK
     Route: 065

REACTIONS (2)
  - Pneumonia [Unknown]
  - Oxygen saturation decreased [Recovered/Resolved with Sequelae]

NARRATIVE: CASE EVENT DATE: 20180827
